FAERS Safety Report 9205928 (Version 2)
Quarter: 2013Q2

REPORT INFORMATION
  Report Type: Spontaneous
  Country: ES (occurrence: ES)
  Receive Date: 20130403
  Receipt Date: 20130403
  Transmission Date: 20140414
  Serious: Yes (Other)
  Sender: FDA-Public Use
  Company Number: ES-009507513-1303ESP001411

PATIENT
  Age: 79 Year
  Sex: Female
  Weight: 51 kg

DRUGS (2)
  1. FOSAVANCE [Suspect]
     Indication: OSTEOPOROSIS POSTMENOPAUSAL
     Dosage: 70 MG/ 5600 IU, QW
     Route: 048
     Dates: end: 201302
  2. FOSAMAX [Suspect]
     Indication: OSTEOPOROSIS POSTMENOPAUSAL
     Dosage: 1 DF, QW
     Route: 048
     Dates: start: 2001, end: 201302

REACTIONS (3)
  - Osteonecrosis of jaw [Recovered/Resolved with Sequelae]
  - Oral infection [Recovered/Resolved with Sequelae]
  - Tooth extraction [Recovered/Resolved with Sequelae]
